FAERS Safety Report 7403049-X (Version None)
Quarter: 2011Q2

REPORT INFORMATION
  Report Type: 
  Country: None (occurrence: None)
  Receive Date: 20110408
  Receipt Date: 20110408
  Transmission Date: 20111010
  Serious: Yes (Hospitalization)
  Sender: FDA-Public Use
  Company Number: IT-ABBOTT-11P-083-0714762-00

PATIENT
  Sex: Male

DRUGS (4)
  1. ESOMEPRAZOLE [Suspect]
     Indication: INTENTIONAL OVERDOSE
     Route: 048
     Dates: start: 20110318, end: 20110318
  2. PROMAZINE [Suspect]
     Indication: INTENTIONAL OVERDOSE
     Dosage: 20ML OF 40MG/ML SOLUTION
     Route: 048
     Dates: start: 20110318, end: 20110318
  3. CIPRALEX FILM-COATED TABLETS [Suspect]
     Indication: INTENTIONAL OVERDOSE
     Dosage: ONCE
     Route: 048
     Dates: start: 20110318, end: 20110318
  4. VALPROIC ACID [Suspect]
     Indication: INTENTIONAL OVERDOSE
     Dosage: ONCE
     Route: 048
     Dates: start: 20110318, end: 20110318

REACTIONS (3)
  - MULTIPLE DRUG OVERDOSE INTENTIONAL [None]
  - SINUS TACHYCARDIA [None]
  - SOPOR [None]
